FAERS Safety Report 5497870-5 (Version None)
Quarter: 2007Q4

REPORT INFORMATION
  Report Type: 
  Country: None (occurrence: None)
  Receive Date: 20071018
  Receipt Date: 20070502
  Transmission Date: 20080405
  Serious: Yes (Other)
  Sender: FDA-Public Use
  Company Number: 2007035964

PATIENT
  Age: 46 Year
  Sex: Male

DRUGS (1)
  1. NEURONTIN [Suspect]
     Indication: BACK PAIN
     Dosage: 2400 MG (800 MG, 3 IN 1 D)
     Dates: start: 20010101

REACTIONS (5)
  - AMNESIA [None]
  - CONSTIPATION [None]
  - DEPRESSION [None]
  - HEART RATE INCREASED [None]
  - SUICIDAL IDEATION [None]
